FAERS Safety Report 23075731 (Version 3)
Quarter: 2023Q4

REPORT INFORMATION
  Report Type: Spontaneous
  Country: US (occurrence: US)
  Receive Date: 20231017
  Receipt Date: 20231108
  Transmission Date: 20240110
  Serious: No
  Sender: FDA-Public Use
  Company Number: US-SA-SAC20231010000228

PATIENT
  Age: 62 Year
  Sex: Female
  Weight: 67.5 kg

DRUGS (12)
  1. DUPIXENT [Suspect]
     Active Substance: DUPILUMAB
     Indication: Hyperlipidaemia
     Dosage: UNK
  2. DUPIXENT [Suspect]
     Active Substance: DUPILUMAB
     Indication: Asthma
     Dosage: 400 MG, 1X
     Route: 058
     Dates: start: 20230925, end: 20230925
  3. TEZSPIRE [Concomitant]
     Active Substance: TEZEPELUMAB-EKKO
     Dosage: UNK
  4. CLONIDINE [Concomitant]
     Active Substance: CLONIDINE
  5. VALACYCLOVIR [Concomitant]
     Active Substance: VALACYCLOVIR HYDROCHLORIDE
  6. SYNTHROID [Concomitant]
     Active Substance: LEVOTHYROXINE SODIUM
  7. EPINEPHRINE [Concomitant]
     Active Substance: EPINEPHRINE
  8. ZOLPIDEM [Concomitant]
     Active Substance: ZOLPIDEM TARTRATE
  9. SYMBICORT [Concomitant]
     Active Substance: BUDESONIDE\FORMOTEROL FUMARATE DIHYDRATE
  10. EZETIMIBE [Concomitant]
     Active Substance: EZETIMIBE
  11. IPRATROPIUM [Concomitant]
     Active Substance: IPRATROPIUM
  12. DILTIAZEM [Concomitant]
     Active Substance: DILTIAZEM

REACTIONS (7)
  - Headache [Unknown]
  - Dyspnoea [Recovered/Resolved]
  - White blood cell count increased [Not Recovered/Not Resolved]
  - Urticaria [Unknown]
  - Eye swelling [Unknown]
  - Drug ineffective [Unknown]
  - Product use in unapproved indication [Unknown]

NARRATIVE: CASE EVENT DATE: 20230101
